FAERS Safety Report 13510666 (Version 1)
Quarter: 2017Q2

REPORT INFORMATION
  Report Type: Spontaneous
  Country: US (occurrence: US)
  Receive Date: 20170503
  Receipt Date: 20170503
  Transmission Date: 20170830
  Serious: Yes (Hospitalization, Other)
  Sender: FDA-Public Use
  Company Number: US-ALVOGEN-2017-ALVOGEN-092024

PATIENT
  Age: 37 Year
  Sex: Male

DRUGS (11)
  1. BUDESONIDE. [Concomitant]
     Active Substance: BUDESONIDE
     Indication: ACUTE RESPIRATORY FAILURE
  2. METHYLPREDNISOLONE. [Concomitant]
     Active Substance: METHYLPREDNISOLONE
     Indication: STATUS ASTHMATICUS
     Route: 042
  3. FENTANYL. [Suspect]
     Active Substance: FENTANYL
     Indication: SEDATION
  4. MIDAZOLAM [Concomitant]
     Active Substance: MIDAZOLAM HYDROCHLORIDE
     Indication: SEDATION
  5. METHYLPREDNISOLONE. [Concomitant]
     Active Substance: METHYLPREDNISOLONE
     Indication: ACUTE RESPIRATORY FAILURE
     Route: 042
  6. ALBUTEROL. [Concomitant]
     Active Substance: ALBUTEROL
     Indication: ACUTE RESPIRATORY FAILURE
     Route: 045
  7. IPRATROPIUM [Concomitant]
     Active Substance: IPRATROPIUM
     Indication: STATUS ASTHMATICUS
     Dosage: INHALED
     Route: 045
  8. IPRATROPIUM [Concomitant]
     Active Substance: IPRATROPIUM
     Indication: ACUTE RESPIRATORY FAILURE
     Dosage: INHALED
     Route: 045
  9. ALBUTEROL. [Concomitant]
     Active Substance: ALBUTEROL
     Indication: STATUS ASTHMATICUS
     Route: 045
  10. CISATRACURIUM. [Concomitant]
     Active Substance: CISATRACURIUM
     Indication: PRODUCT USED FOR UNKNOWN INDICATION
     Dosage: CONTINUOUS INFUSION
  11. BUDESONIDE. [Concomitant]
     Active Substance: BUDESONIDE
     Indication: STATUS ASTHMATICUS

REACTIONS (2)
  - Respiratory depression [Recovering/Resolving]
  - Chest discomfort [Recovering/Resolving]
